FAERS Safety Report 5242218-4 (Version None)
Quarter: 2007Q1

REPORT INFORMATION
  Report Type: 
  Country: None (occurrence: None)
  Receive Date: 20070220
  Receipt Date: 20070213
  Transmission Date: 20070707
  Serious: Yes (Life-Threatening, Hospitalization)
  Sender: FDA-Public Use
  Company Number: DE-SHR-DE-2007-005269

PATIENT
  Sex: Male

DRUGS (1)
  1. ULTRAVIST 300 [Suspect]
     Dosage: UNK, 1 DOSE

REACTIONS (3)
  - CARDIOVASCULAR DISORDER [None]
  - HYPERSENSITIVITY [None]
  - SWELLING [None]
